FAERS Safety Report 5355430-0 (Version None)
Quarter: 2007Q2

REPORT INFORMATION
  Report Type: 
  Country: None (occurrence: None)
  Receive Date: 20070611
  Receipt Date: 20070611
  Transmission Date: 20071010
  Serious: Yes (Hospitalization)
  Sender: FDA-Public Use
  Company Number: None

PATIENT
  Age: 61 Year
  Sex: Male
  Weight: 166.4701 kg

DRUGS (2)
  1. LISINOPRIL [Suspect]
     Indication: HYPERTENSION
     Dosage: 10MG DAILY PO
     Route: 048
  2. FUROSEMIDE [Suspect]
     Dosage: 40 MG TID PO
     Route: 048

REACTIONS (3)
  - DIZZINESS [None]
  - HYPERTENSION [None]
  - HYPOTENSION [None]
